FAERS Safety Report 6240369-9 (Version None)
Quarter: 2009Q2

REPORT INFORMATION
  Report Type: 
  Country: None (occurrence: None)
  Receive Date: 20090619
  Receipt Date: 20090604
  Transmission Date: 20091009
  Serious: Yes (Other)
  Sender: FDA-Public Use
  Company Number: 2008AL007322

PATIENT
  Age: 80 Year
  Sex: Male

DRUGS (15)
  1. DIGOXIN [Suspect]
     Dosage: PO
     Route: 048
  2. APRESOLINE [Concomitant]
  3. LIPITOR [Concomitant]
  4. PROSCAR [Concomitant]
  5. NEXIUM [Concomitant]
  6. ASPIRIN [Concomitant]
  7. IMDUR [Concomitant]
  8. COUMADIN [Concomitant]
  9. COREG [Concomitant]
  10. LASIX [Concomitant]
  11. ALDACRONE [Concomitant]
  12. K-DUR [Concomitant]
  13. GLUCOTROL [Concomitant]
  14. GENUVIA [Concomitant]
  15. CHROMAGEN [Concomitant]

REACTIONS (4)
  - CARDIOACTIVE DRUG LEVEL INCREASED [None]
  - COUGH [None]
  - DYSPNOEA [None]
  - MULTIPLE INJURIES [None]
